FAERS Safety Report 18688723 (Version 1)
Quarter: 2020Q4

REPORT INFORMATION
  Report Type: Spontaneous
  Country: FR (occurrence: FR)
  Receive Date: 20201231
  Receipt Date: 20201231
  Transmission Date: 20210114
  Serious: Yes (Hospitalization)
  Sender: FDA-Public Use
  Company Number: FR-TEVA-2020-FR-1863728

PATIENT
  Age: 77 Year
  Sex: Female
  Weight: 59.6 kg

DRUGS (18)
  1. VINCRISTINE (SULFATE DE) [Suspect]
     Active Substance: VINCRISTINE SULFATE
     Indication: OLIGODENDROGLIOMA
     Dosage: J7 AND J28, 4MG
     Route: 042
     Dates: start: 20200814
  2. FUNGIZONE [Concomitant]
     Active Substance: AMPHOTERICIN B
     Route: 048
     Dates: start: 20200817
  3. HEMIGOXINE NATIVELLE [Concomitant]
     Active Substance: DIGOXIN
     Dosage: 0.13MG
     Route: 048
     Dates: start: 20200804
  4. ATORVASTATINE [Concomitant]
     Active Substance: ATORVASTATIN
     Dosage: 20MG
     Dates: start: 20200804
  5. PANTOPRAZOLE [Concomitant]
     Active Substance: PANTOPRAZOLE
     Dosage: 20MG
     Route: 048
     Dates: start: 20200811
  6. BELUSTINE [Suspect]
     Active Substance: LOMUSTINE
     Indication: OLIGODENDROGLIOMA
     Dosage: J1,40MG
     Route: 048
     Dates: start: 20200806
  7. A-CERUMEN [Concomitant]
     Dosage: 2ML
     Route: 061
     Dates: start: 20200820, end: 20200830
  8. INNOHEP [Concomitant]
     Active Substance: TINZAPARIN SODIUM
     Dosage: 0.5ML
     Route: 058
     Dates: start: 20200804, end: 20201104
  9. GAVISCON [Concomitant]
     Active Substance: ALUMINUM HYDROXIDE\MAGNESIUM CARBONATE
     Route: 048
     Dates: start: 20200820
  10. NATULAN [Suspect]
     Active Substance: PROCARBAZINE HYDROCHLORIDE
     Indication: OLIGODENDROGLIOMA
     Dosage: FOR 14 DAYS FROM D7, 10MG
     Route: 048
     Dates: start: 20200814
  11. EMEND [Concomitant]
     Active Substance: APREPITANT
     Dosage: 80MG
     Route: 048
     Dates: start: 20200807
  12. LEVETIRACETAM. [Concomitant]
     Active Substance: LEVETIRACETAM
     Dosage: 500MG
     Route: 048
     Dates: start: 20200804
  13. LEVOTHYROX [Concomitant]
     Active Substance: LEVOTHYROXINE
     Route: 048
     Dates: start: 20200804
  14. ALDACTONE [Concomitant]
     Active Substance: SPIRONOLACTONE
     Route: 048
     Dates: start: 20200804
  15. ISOPTINE [Concomitant]
     Active Substance: VERAPAMIL HYDROCHLORIDE
     Dosage: 120MG
     Route: 048
     Dates: start: 20200804
  16. DOLIPRANE [Concomitant]
     Active Substance: ACETAMINOPHEN
     Dosage: 4000MG
     Route: 048
     Dates: start: 20200804
  17. UVEDOSE [Concomitant]
     Active Substance: CHOLECALCIFEROL
     Dosage: 2ML
     Route: 048
     Dates: start: 20200807, end: 20200811
  18. PREVISCAN [Concomitant]
     Dosage: 20MG
     Route: 048
     Dates: start: 20201113

REACTIONS (3)
  - Mucosal inflammation [Recovered/Resolved]
  - Rash pruritic [Recovering/Resolving]
  - Ear pain [Recovered/Resolved]

NARRATIVE: CASE EVENT DATE: 202008
